FAERS Safety Report 22090892 (Version 1)
Quarter: 2023Q1

REPORT INFORMATION
  Report Type: Spontaneous
  Country: HR (occurrence: None)
  Receive Date: 20230314
  Receipt Date: 20230314
  Transmission Date: 20230417
  Serious: Yes (Other)
  Sender: FDA-Public Use
  Company Number: 2023A054236

PATIENT
  Age: 66 Year
  Sex: Female

DRUGS (3)
  1. QUETIAPINE [Suspect]
     Active Substance: QUETIAPINE
     Dosage: UNK
     Route: 048
     Dates: start: 20230122, end: 20230122
  2. FLURAZEPAM HYDROCHLORIDE [Suspect]
     Active Substance: FLURAZEPAM HYDROCHLORIDE
     Dosage: UNK
     Route: 048
     Dates: start: 20230122, end: 20230122
  3. PREGABALIN [Suspect]
     Active Substance: PREGABALIN
     Dosage: UNK
     Route: 048
     Dates: start: 20230122, end: 20230122

REACTIONS (6)
  - Suicide attempt [Unknown]
  - Miosis [Unknown]
  - Hypotension [Unknown]
  - Sluggishness [Unknown]
  - Somnolence [Unknown]
  - Tachycardia [Unknown]

NARRATIVE: CASE EVENT DATE: 20230122
